FAERS Safety Report 6888876-X (Version None)
Quarter: 2010Q3

REPORT INFORMATION
  Report Type: 
  Country: None (occurrence: None)
  Receive Date: 20100730
  Receipt Date: 20071201
  Transmission Date: 20110219
  Serious: Yes (Other)
  Sender: FDA-Public Use
  Company Number: US-PFIZER INC-2007077926

PATIENT
  Sex: Female
  Weight: 68.5 kg

DRUGS (6)
  1. LIPITOR [Suspect]
     Indication: HYPERLIPIDAEMIA
     Route: 048
     Dates: start: 20040301, end: 20070814
  2. SYNTHROID [Concomitant]
  3. BENAZEPRIL HYDROCHLORIDE [Concomitant]
  4. NEXIUM [Concomitant]
  5. PIROXICAM [Concomitant]
  6. FOSAMAX [Concomitant]

REACTIONS (3)
  - BLOOD CREATINE PHOSPHOKINASE INCREASED [None]
  - HEPATIC ENZYME INCREASED [None]
  - MYOSITIS [None]
